FAERS Safety Report 18577152 (Version 1)
Quarter: 2020Q4

REPORT INFORMATION
  Report Type: Report from Study
  Country: CA (occurrence: CA)
  Receive Date: 20201204
  Receipt Date: 20201204
  Transmission Date: 20210114
  Serious: Yes (Other)
  Sender: FDA-Public Use
  Company Number: CA-JNJFOC-20201003007

PATIENT
  Age: 76 Year
  Sex: Female
  Weight: 50 kg

DRUGS (2)
  1. STELARA [Suspect]
     Active Substance: USTEKINUMAB
     Route: 058
     Dates: start: 20171222
  2. STELARA [Suspect]
     Active Substance: USTEKINUMAB
     Indication: CROHN^S DISEASE
     Route: 058
     Dates: start: 20171222

REACTIONS (9)
  - Proctalgia [Not Recovered/Not Resolved]
  - Insomnia [Unknown]
  - Abdominal pain [Not Recovered/Not Resolved]
  - Renal cyst [Unknown]
  - Diverticulitis [Not Recovered/Not Resolved]
  - Pancreatic cyst [Unknown]
  - Diarrhoea [Not Recovered/Not Resolved]
  - Asthenia [Not Recovered/Not Resolved]
  - Splenic cyst [Unknown]

NARRATIVE: CASE EVENT DATE: 20200807
